FAERS Safety Report 6933460-2 (Version None)
Quarter: 2010Q3

REPORT INFORMATION
  Report Type: 
  Country: None (occurrence: None)
  Receive Date: 20100820
  Receipt Date: 20100810
  Transmission Date: 20110219
  Serious: Yes (Death, Other)
  Sender: FDA-Public Use
  Company Number: US-PFIZER INC-2010061164

PATIENT
  Sex: Male
  Weight: 72.6 kg

DRUGS (1)
  1. SUTENT [Suspect]
     Indication: RENAL CANCER
     Dosage: 25 MG, DAILY
     Route: 048
     Dates: start: 20100129, end: 20100402

REACTIONS (3)
  - DEEP VEIN THROMBOSIS [None]
  - DISEASE PROGRESSION [None]
  - RENAL CANCER [None]
